FAERS Safety Report 9547537 (Version 1)
Quarter: 2013Q3

REPORT INFORMATION
  Report Type: Spontaneous
  Country: None (occurrence: None)
  Receive Date: 20130705
  Receipt Date: 20130705
  Transmission Date: 20140515
  Serious: Yes (Other)
  Sender: FDA-Public Use
  Company Number: 2012110086

PATIENT
  Age: 84 Year
  Sex: Female

DRUGS (1)
  1. SOMA [Suspect]

REACTIONS (1)
  - Drug ineffective [None]
